FAERS Safety Report 9052001 (Version 1)
Quarter: 2013Q1

REPORT INFORMATION
  Report Type: Spontaneous
  Country: US (occurrence: None)
  Receive Date: 20130129
  Receipt Date: 20130129
  Transmission Date: 20140127
  Serious: No
  Sender: FDA-Public Use
  Company Number: None

PATIENT
  Age: 27 Year
  Sex: Female
  Weight: 57.61 kg

DRUGS (1)
  1. LEXAPRO [Suspect]
     Dosage: LEXAPRO 5 MG  DAILY 6/12  - CURRENT

REACTIONS (4)
  - Anxiety [None]
  - Mood altered [None]
  - Condition aggravated [None]
  - Product substitution issue [None]
